FAERS Safety Report 8024600-5 (Version None)
Quarter: 2012Q1

REPORT INFORMATION
  Report Type: 
  Country: None (occurrence: None)
  Receive Date: 20120103
  Receipt Date: 20111219
  Transmission Date: 20120608
  Serious: Yes (Disabling, Other)
  Sender: FDA-Public Use
  Company Number: 1000026560

PATIENT
  Age: 42 Year
  Sex: Male
  Weight: 114 kg

DRUGS (2)
  1. QUETIAPINE FUMARATE [Suspect]
     Indication: ANXIETY
     Dosage: 600 MG (300 MG, 2 IN 1 D), ORAL
     Route: 048
     Dates: start: 20060801, end: 20110401
  2. CITALOPRAM HYDROBROMIDE [Suspect]
     Indication: DEPRESSION
     Dosage: 40 MG (40 MG, 1 IN 1 D), ORAL
     Route: 048
     Dates: start: 20091001, end: 20111101

REACTIONS (2)
  - FALL [None]
  - ELECTROCARDIOGRAM QT PROLONGED [None]
